FAERS Safety Report 10644290 (Version 2)
Quarter: 2014Q4

REPORT INFORMATION
  Report Type: Spontaneous
  Country: US (occurrence: US)
  Receive Date: 20141210
  Receipt Date: 20141221
  Transmission Date: 20150529
  Serious: No
  Sender: FDA-Public Use
  Company Number: US-GLAXOSMITHKLINE-US2014GSK033970

PATIENT
  Age: 67 Year
  Sex: Male

DRUGS (8)
  1. HYDROCHLORIDE (NOS) [Concomitant]
     Dosage: EYE DROPS
  2. RANITIDINE HYDROCHLORIDE. [Concomitant]
     Active Substance: RANITIDINE HYDROCHLORIDE
  3. ALLER TEC [Concomitant]
  4. VERAMYST [Suspect]
     Active Substance: FLUTICASONE FUROATE
     Indication: RHINITIS ALLERGIC
     Dosage: 1 SPRAY EACH NOSTRIL
     Route: 045
     Dates: start: 2012
  5. PENICILLIN [Concomitant]
     Active Substance: PENICILLIN
     Indication: DENTAL DISORDER PROPHYLAXIS
  6. HTZ [Concomitant]
  7. DICLOFENAC [Concomitant]
     Active Substance: DICLOFENAC
  8. VITAMINS [Concomitant]
     Active Substance: VITAMINS

REACTIONS (4)
  - Product quality issue [Unknown]
  - Medication error [Recovered/Resolved]
  - Epistaxis [Recovered/Resolved]
  - Device misuse [Recovered/Resolved]

NARRATIVE: CASE EVENT DATE: 201410
